FAERS Safety Report 7112853-7 (Version None)
Quarter: 2010Q4

REPORT INFORMATION
  Report Type: 
  Country: None (occurrence: None)
  Receive Date: 20101119
  Receipt Date: 20091119
  Transmission Date: 20110411
  Serious: No
  Sender: FDA-Public Use
  Company Number: US-BRISTOL-MYERS SQUIBB COMPANY-14804330

PATIENT
  Age: 79 Year
  Sex: Male
  Weight: 97 kg

DRUGS (3)
  1. AVALIDE [Suspect]
     Indication: HYPERTENSION
     Dosage: 1 DF- 150MG/12.5MG; DOSE INCREASED TO 300MG/25MG
  2. GLUCOSAMINE [Concomitant]
  3. CHONDROITIN [Concomitant]

REACTIONS (1)
  - HYPERTENSION [None]
